FAERS Safety Report 9413753 (Version 2)
Quarter: 2013Q3

REPORT INFORMATION
  Report Type: Spontaneous
  Country: US (occurrence: US)
  Receive Date: 20130722
  Receipt Date: 20130731
  Transmission Date: 20140515
  Serious: Yes (Death, Hospitalization)
  Sender: FDA-Public Use
  Company Number: US-009507513-1307USA007964

PATIENT
  Age: 51 Year
  Sex: Female

DRUGS (3)
  1. TEMODAR [Suspect]
     Indication: GLIOBLASTOMA
     Dosage: 80 MG, QD
     Route: 048
     Dates: start: 20121221, end: 20130131
  2. TEMODAR [Suspect]
     Indication: GLIOBLASTOMA
     Dosage: 5 MG, QD
     Route: 048
     Dates: start: 20121221, end: 20130131
  3. AVASTIN (ATORVASTATIN CALCIUM) [Concomitant]

REACTIONS (2)
  - Death [Fatal]
  - Failure to thrive [Unknown]
